FAERS Safety Report 5572877-8 (Version None)
Quarter: 2007Q4

REPORT INFORMATION
  Report Type: 
  Country: None (occurrence: None)
  Receive Date: 20071223
  Receipt Date: 20071218
  Transmission Date: 20080405
  Serious: Yes (Life-Threatening, Hospitalization, Other)
  Sender: FDA-Public Use
  Company Number: PHBS2007NO16797

PATIENT
  Age: 69 Year
  Sex: Male

DRUGS (3)
  1. LOSARTAN POTASSIUM [Suspect]
     Indication: HYPERTENSION
     Dosage: 50 MG, UNK
  2. METFORMIN HCL [Suspect]
  3. ESIDRIX [Suspect]
     Indication: HYPERTENSION
     Dosage: 12.5 MG, UNK

REACTIONS (14)
  - ABDOMINAL PAIN [None]
  - BLOOD CREATININE INCREASED [None]
  - BLOOD POTASSIUM INCREASED [None]
  - BODY TEMPERATURE DECREASED [None]
  - CATHETER PLACEMENT [None]
  - CIRCULATORY COLLAPSE [None]
  - DIARRHOEA [None]
  - DRUG INTERACTION [None]
  - HYPERVENTILATION [None]
  - LACTIC ACIDOSIS [None]
  - NEPHROLITHIASIS [None]
  - RENAL FAILURE [None]
  - RESPIRATORY ARREST [None]
  - VISUAL DISTURBANCE [None]
